FAERS Safety Report 4418569-X (Version None)
Quarter: 2004Q3

REPORT INFORMATION
  Report Type: 
  Country: None (occurrence: None)
  Receive Date: 20040809
  Receipt Date: 20000522
  Transmission Date: 20050211
  Serious: No
  Sender: FDA-Public Use
  Company Number: US-GLAXOSMITHKLINE-A0328690A

PATIENT
  Age: 46 Year
  Sex: Female

DRUGS (1)
  1. PAXIL [Suspect]
     Indication: DEPRESSION
     Route: 048
     Dates: start: 19920101

REACTIONS (7)
  - BALANCE DISORDER [None]
  - DIZZINESS [None]
  - DRUG WITHDRAWAL SYNDROME [None]
  - NAUSEA [None]
  - SENSORY DISTURBANCE [None]
  - VISUAL DISTURBANCE [None]
  - WEIGHT INCREASED [None]
